FAERS Safety Report 10403055 (Version 1)
Quarter: 2014Q3

REPORT INFORMATION
  Report Type: Spontaneous
  Country: US (occurrence: None)
  Receive Date: 20140821
  Receipt Date: 20140821
  Transmission Date: 20150326
  Serious: Yes (Other)
  Sender: FDA-Public Use
  Company Number: None

PATIENT
  Age: 66 Year
  Sex: Male

DRUGS (1)
  1. TASIGNA [Suspect]
     Active Substance: NILOTINIB
     Indication: MYELOFIBROSIS
     Route: 048
     Dates: start: 20120119, end: 20140720

REACTIONS (2)
  - Chills [None]
  - Abdominal pain [None]

NARRATIVE: CASE EVENT DATE: 20140720
